FAERS Safety Report 14185848 (Version 1)
Quarter: 2017Q4

REPORT INFORMATION
  Report Type: Spontaneous
  Country: US (occurrence: None)
  Receive Date: 20171112
  Receipt Date: 20171112
  Transmission Date: 20180321
  Serious: No
  Sender: FDA-Public Use
  Company Number: None

PATIENT
  Age: 63 Year
  Sex: Female

DRUGS (1)
  1. COSENTYX [Suspect]
     Active Substance: SECUKINUMAB
     Indication: PSORIATIC ARTHROPATHY
     Route: 058
     Dates: start: 20170614

REACTIONS (7)
  - Feeling of body temperature change [None]
  - Constipation [None]
  - Myalgia [None]
  - Diarrhoea [None]
  - Hot flush [None]
  - Influenza [None]
  - Nausea [None]
